FAERS Safety Report 5218957-8 (Version None)
Quarter: 2007Q1

REPORT INFORMATION
  Report Type: 
  Country: None (occurrence: None)
  Receive Date: 20070123
  Receipt Date: 20070112
  Transmission Date: 20070707
  Serious: Yes (Hospitalization, Other)
  Sender: FDA-Public Use
  Company Number: 33555

PATIENT
  Sex: Female
  Weight: 52.6173 kg

DRUGS (9)
  1. MITOXANTRONE [Suspect]
     Indication: DRUG USE FOR UNKNOWN INDICATION
     Dosage: 8MG/M2, DAY 2 ONLY, IV
     Route: 042
     Dates: start: 20061227
  2. IRON [Concomitant]
  3. PROCRIT [Concomitant]
  4. RED BLOOD CELLS [Concomitant]
  5. RITUXIMAB [Concomitant]
  6. FLUDARABINE [Concomitant]
  7. MITOXANTRONE [Concomitant]
  8. OXALIPLATIN [Concomitant]
  9. DEXAMETHASONE TAB [Concomitant]

REACTIONS (7)
  - ASTHENIA [None]
  - B-CELL LYMPHOMA STAGE IV [None]
  - DIABETES MELLITUS [None]
  - FOLLICLE CENTRE LYMPHOMA DIFFUSE SMALL CELL LYMPHOMA [None]
  - HAEMOGLOBIN DECREASED [None]
  - PYREXIA [None]
  - WEIGHT DECREASED [None]
